FAERS Safety Report 17495804 (Version 4)
Quarter: 2020Q2

REPORT INFORMATION
  Report Type: Spontaneous
  Country: US (occurrence: US)
  Receive Date: 20200304
  Receipt Date: 20200428
  Transmission Date: 20200713
  Serious: Yes (Other)
  Sender: FDA-Public Use
  Company Number: US-PFIZER INC-2020096586

PATIENT
  Age: 56 Year
  Sex: Female
  Weight: 68.03 kg

DRUGS (1)
  1. EFFEXOR XR [Suspect]
     Active Substance: VENLAFAXINE HYDROCHLORIDE
     Indication: MAJOR DEPRESSION
     Dosage: 150 MG, 1X/DAY
     Dates: start: 2016

REACTIONS (3)
  - Drug dependence [Unknown]
  - Fracture [Unknown]
  - Osteoporosis [Unknown]
